FAERS Safety Report 4343219-0 (Version None)
Quarter: 2004Q1

REPORT INFORMATION
  Report Type: 
  Country: None (occurrence: None)
  Receive Date: 20040325
  Receipt Date: 20031218
  Transmission Date: 20041129
  Serious: No
  Sender: FDA-Public Use
  Company Number: USA030844512

PATIENT
  Age: 81 Year
  Sex: Female
  Weight: 51 kg

DRUGS (12)
  1. FORTEO [Suspect]
     Indication: OSTEOPOROSIS
     Dates: start: 20030201, end: 20030101
  2. COZAAR [Concomitant]
  3. QUININE SULFATE [Concomitant]
  4. OXYCONTIN [Concomitant]
  5. MULTIVITAMIN [Concomitant]
  6. KLONOPIN [Concomitant]
  7. SOMA [Concomitant]
  8. LEVOXYL [Concomitant]
  9. PROMETRIUM [Concomitant]
  10. CLIMARA [Concomitant]
  11. CALCIUM [Concomitant]
  12. MAGNESIUM [Concomitant]

REACTIONS (6)
  - BACK PAIN [None]
  - CARDIAC FLUTTER [None]
  - HEART RATE INCREASED [None]
  - MUSCLE CRAMP [None]
  - MUSCULAR WEAKNESS [None]
  - PAIN IN EXTREMITY [None]
